FAERS Safety Report 4409360-9 (Version None)
Quarter: 2004Q3

REPORT INFORMATION
  Report Type: 
  Country: None (occurrence: None)
  Receive Date: 20040722
  Receipt Date: 20040714
  Transmission Date: 20050211
  Serious: Yes (Death)
  Sender: FDA-Public Use
  Company Number: US-JNJFOC-20040704150

PATIENT
  Age: 62 Year
  Sex: Male

DRUGS (3)
  1. RISPERDAL CONSTA [Suspect]
     Indication: AGGRESSION
     Dosage: 50 MG , 1 IN 2 WEEK, INTRA-MUSCULAR
     Route: 030
     Dates: start: 20040101, end: 20040713
  2. RISPERDAL CONSTA [Suspect]
     Indication: HOSTILITY
     Dosage: 50 MG , 1 IN 2 WEEK, INTRA-MUSCULAR
     Route: 030
     Dates: start: 20040101, end: 20040713
  3. HALDOL [Suspect]
     Indication: AGGRESSION
     Dosage: 150 MG, IN 1 DAY, INTRAVENOUS
     Route: 042
     Dates: start: 20040701, end: 20040713

REACTIONS (1)
  - DEATH [None]
